FAERS Safety Report 19163453 (Version 1)
Quarter: 2021Q2

REPORT INFORMATION
  Report Type: Spontaneous
  Country: US (occurrence: US)
  Receive Date: 20210421
  Receipt Date: 20210421
  Transmission Date: 20210717
  Serious: No
  Sender: FDA-Public Use
  Company Number: None

PATIENT
  Age: 20 Year
  Sex: Male

DRUGS (1)
  1. STELARA [Suspect]
     Active Substance: USTEKINUMAB
     Indication: PSORIASIS
     Dosage: ?          OTHER FREQUENCY:EVERY12 WEEKS;?
     Route: 058
     Dates: start: 20190710

REACTIONS (2)
  - Drug ineffective [None]
  - Pharyngitis streptococcal [None]

NARRATIVE: CASE EVENT DATE: 202102
